FAERS Safety Report 10214909 (Version 1)
Quarter: 2014Q2

REPORT INFORMATION
  Report Type: Report from Study
  Country: KR (occurrence: KR)
  Receive Date: 20140603
  Receipt Date: 20140603
  Transmission Date: 20141212
  Serious: Yes (Other)
  Sender: FDA-Public Use
  Company Number: KR-BAXTER-2014BAX027364

PATIENT
  Sex: 0

DRUGS (5)
  1. DEXAMETHASONE [Suspect]
     Indication: ANGIOCENTRIC LYMPHOMA
     Dosage: DAY 1-4, EVERY 28 DAYS UP TO 2 CYCLES
     Route: 065
  2. L-ASPARAGINASE [Suspect]
     Indication: ANGIOCENTRIC LYMPHOMA
     Dosage: 6000 IU/M2, DAY 4, 6, 8 AND 10, EVERY 28 DAYS UP TO 2 CYCLES
     Route: 042
  3. HOLOXAN INJ 1000MG [Suspect]
     Indication: ANGIOCENTRIC LYMPHOMA
     Dosage: DAYS 2-3, EVERY 28 DAYS UP TO 2 CYCLES
     Route: 065
  4. METHOTREXATE [Suspect]
     Indication: ANGIOCENTRIC LYMPHOMA
     Dosage: 3 G/M2, DAY 1, EVERY 28 DAYS UP TO 2 CYCLES
     Route: 065
  5. ETOPOSIDE [Suspect]
     Indication: ANGIOCENTRIC LYMPHOMA
     Dosage: EVERY 28 DAYS UP TO 2 CYCLES
     Route: 065

REACTIONS (1)
  - Toxicity to various agents [Unknown]
